FAERS Safety Report 4288803-8 (Version None)
Quarter: 2004Q1

REPORT INFORMATION
  Report Type: 
  Country: None (occurrence: None)
  Receive Date: 20040205
  Receipt Date: 20040128
  Transmission Date: 20041129
  Serious: Yes (Hospitalization)
  Sender: FDA-Public Use
  Company Number: 204439

PATIENT
  Age: 68 Year
  Sex: Male

DRUGS (8)
  1. MABTHERA (RITUXIMAB) CONC FOR SOLUTION FOR INFUSION [Suspect]
     Indication: CHRONIC LYMPHOCYTIC LEUKAEMIA
     Dosage: 375 MG/M2, UNKNOWN; INTRAVENOUS
     Route: 042
     Dates: start: 20030826
  2. FLUDARABINE PHOSPHATE [Suspect]
     Indication: CHRONIC LYMPHOCYTIC LEUKAEMIA
     Dosage: 25 MG/M2, UNKNOWN; INTRAVENOUS
     Route: 042
     Dates: start: 20030904
  3. CYCLOPHOSPHAMIDE [Suspect]
     Indication: CHRONIC LYMPHOCYTIC LEUKAEMIA
     Dosage: 250 MG/M2; UNKNOWN; INTRAVENOUS
     Route: 042
     Dates: start: 20030904
  4. BENURON (GERMANY) (ACETAMINOPHEN) [Concomitant]
  5. FENISTIL (DIMETHINDENE MALEATE) [Concomitant]
  6. MACL. 9% (SODIUM CHLORIDE) [Concomitant]
  7. PANTOZOL (PANTOPRAZOLE) [Concomitant]
  8. ZOFRAN [Concomitant]

REACTIONS (4)
  - ALANINE AMINOTRANSFERASE INCREASED [None]
  - ASPARTATE AMINOTRANSFERASE INCREASED [None]
  - BLOOD LACTATE DEHYDROGENASE INCREASED [None]
  - PYREXIA [None]
